FAERS Safety Report 26204466 (Version 1)
Quarter: 2025Q4

REPORT INFORMATION
  Report Type: Report from Study
  Country: US (occurrence: US)
  Receive Date: 20251226
  Receipt Date: 20251226
  Transmission Date: 20260117
  Serious: Yes (Other)
  Sender: GILEAD
  Company Number: US-GILEAD-2025-0742269

PATIENT
  Age: 66 Year
  Sex: Female

DRUGS (1)
  1. TENOFOVIR ALAFENAMIDE [Suspect]
     Active Substance: TENOFOVIR ALAFENAMIDE
     Indication: Hepatitis B
     Dosage: 25 MG
     Route: 065

REACTIONS (2)
  - Pneumonia [Recovering/Resolving]
  - Illness [Not Recovered/Not Resolved]

NARRATIVE: CASE EVENT DATE: 20251216
